FAERS Safety Report 9157254 (Version 1)
Quarter: 2013Q1

REPORT INFORMATION
  Report Type: Spontaneous
  Country: US (occurrence: None)
  Receive Date: 20130308
  Receipt Date: 20130308
  Transmission Date: 20140127
  Serious: Yes (Disabling)
  Sender: FDA-Public Use
  Company Number: None

PATIENT
  Sex: Female
  Weight: 68.04 kg

DRUGS (1)
  1. PANTOPRAZOLE SOD. TB TEVA-MFG. 40 MG [Suspect]

REACTIONS (4)
  - Pollakiuria [None]
  - Burning sensation [None]
  - Fungal infection [None]
  - Vulvovaginal swelling [None]
